FAERS Safety Report 8790681 (Version 1)
Quarter: 2012Q4

REPORT INFORMATION
  Report Type: Spontaneous
  Country: US (occurrence: None)
  Receive Date: 20120913
  Receipt Date: 20120913
  Transmission Date: 20130627
  Serious: Yes (Hospitalization)
  Sender: FDA-Public Use
  Company Number: None

PATIENT
  Age: 49 Year
  Sex: Female
  Weight: 66 kg

DRUGS (1)
  1. OMONTYS [Suspect]
     Indication: ANEMIA OF CHRONIC DISEASE
     Route: 042
     Dates: start: 20120907, end: 20120907

REACTIONS (6)
  - Pruritus generalised [None]
  - Lip swelling [None]
  - Swollen tongue [None]
  - Nausea [None]
  - Vomiting [None]
  - Syncope [None]
